FAERS Safety Report 5025801-0 (Version None)
Quarter: 2006Q2

REPORT INFORMATION
  Report Type: 
  Country: None (occurrence: None)
  Receive Date: 20060614
  Receipt Date: 20060413
  Transmission Date: 20061013
  Serious: Yes (Other)
  Sender: FDA-Public Use
  Company Number: PHNU2006DE01689

PATIENT
  Sex: Female
  Weight: 91 kg

DRUGS (1)
  1. CIBADREX [Suspect]
     Indication: HYPERTENSION
     Dosage: 1 DF, QD
     Dates: start: 20040501

REACTIONS (1)
  - GINGIVAL HYPERPLASIA [None]
